FAERS Safety Report 9621259 (Version 1)
Quarter: 2013Q4

REPORT INFORMATION
  Report Type: Report from Study
  Country: CA (occurrence: CA)
  Receive Date: 20131015
  Receipt Date: 20131015
  Transmission Date: 20140711
  Serious: Yes (Other)
  Sender: FDA-Public Use
  Company Number: CA-JNJFOC-20131005017

PATIENT
  Age: 83 Year
  Sex: Female
  Weight: 60 kg

DRUGS (6)
  1. REMICADE [Suspect]
     Indication: COLITIS ULCERATIVE
     Route: 042
     Dates: start: 20130312
  2. WARFARIN [Concomitant]
     Route: 048
  3. METOPROLOL [Concomitant]
     Route: 048
  4. VITAMIN D [Concomitant]
     Route: 048
  5. CALCIUM [Concomitant]
     Route: 048
  6. ACTONEL [Concomitant]
     Route: 048

REACTIONS (2)
  - Basal cell carcinoma [Unknown]
  - Rectal haemorrhage [Unknown]
